FAERS Safety Report 7728315-X (Version None)
Quarter: 2011Q3

REPORT INFORMATION
  Report Type: 
  Country: None (occurrence: None)
  Receive Date: 20110905
  Receipt Date: 20110830
  Transmission Date: 20111222
  Serious: Yes (Other)
  Sender: FDA-Public Use
  Company Number: PHEH2011US01271

PATIENT
  Sex: Female

DRUGS (4)
  1. SOMA [Concomitant]
     Dosage: UNK UKN, UNK
  2. VALIUM [Concomitant]
     Dosage: UNK UKN, UNK
  3. NORCO [Concomitant]
     Dosage: UNK UKN, UNK
  4. GILENYA [Suspect]
     Dosage: 0.5 MG, QD
     Route: 048
     Dates: start: 20110601

REACTIONS (3)
  - INFLUENZA LIKE ILLNESS [None]
  - PAIN [None]
  - SUICIDAL IDEATION [None]
